FAERS Safety Report 9611570 (Version 1)
Quarter: 2013Q4

REPORT INFORMATION
  Report Type: Spontaneous
  Country: IN (occurrence: IN)
  Receive Date: 20131010
  Receipt Date: 20131010
  Transmission Date: 20140711
  Serious: Yes (Disabling)
  Sender: FDA-Public Use
  Company Number: PHHY2013IN112609

PATIENT
  Age: 71 Year
  Sex: Male
  Weight: 70 kg

DRUGS (4)
  1. ZOMETA [Suspect]
     Indication: PROSTATE CANCER
     Dosage: 4 MG, MONTHLY
     Route: 042
  2. ZOMETA [Suspect]
     Dosage: UNK UKN, UNK
     Dates: start: 201304
  3. ZOLADEX [Concomitant]
     Indication: PROSTATE CANCER
     Dosage: 10.8 UKN, 3 MONTHLY
     Route: 058
  4. GEMCAL [Concomitant]
     Indication: PROSTATE CANCER
     Dosage: UNK UKN, ONCE IN A DAY
     Route: 048

REACTIONS (1)
  - Arthropathy [Not Recovered/Not Resolved]
